FAERS Safety Report 5075938-5 (Version None)
Quarter: 2006Q3

REPORT INFORMATION
  Report Type: 
  Country: None (occurrence: None)
  Receive Date: 20060808
  Receipt Date: 20060808
  Transmission Date: 20061208
  Serious: Yes (Hospitalization)
  Sender: FDA-Public Use
  Company Number: None

PATIENT
  Sex: Female
  Weight: 75.4 kg

DRUGS (1)
  1. CISPLATIN [Suspect]
     Indication: NASOPHARYNGEAL DISORDER
     Dosage: 401 MG
     Dates: start: 20060705

REACTIONS (3)
  - DEHYDRATION [None]
  - LABORATORY TEST ABNORMAL [None]
  - PERFORMANCE STATUS DECREASED [None]
